FAERS Safety Report 4301093-2 (Version None)
Quarter: 2004Q1

REPORT INFORMATION
  Report Type: 
  Country: None (occurrence: None)
  Receive Date: 20040218
  Receipt Date: 20040210
  Transmission Date: 20041129
  Serious: Yes (Other)
  Sender: FDA-Public Use
  Company Number: 2003183830US

PATIENT
  Age: 85 Year
  Sex: Female

DRUGS (1)
  1. CELEBREX [Suspect]
     Dates: start: 19980101, end: 20020831

REACTIONS (4)
  - BLINDNESS UNILATERAL [None]
  - LACRIMATION INCREASED [None]
  - MACULAR DEGENERATION [None]
  - VISION BLURRED [None]
